FAERS Safety Report 7384604-2 (Version None)
Quarter: 2011Q1

REPORT INFORMATION
  Report Type: 
  Country: None (occurrence: None)
  Receive Date: 20110330
  Receipt Date: 20110325
  Transmission Date: 20110831
  Serious: Yes (Hospitalization)
  Sender: FDA-Public Use
  Company Number: BR-PFIZER INC-2011066752

PATIENT
  Age: 38 Year
  Sex: Female
  Weight: 44 kg

DRUGS (1)
  1. CHAMPIX [Suspect]
     Indication: TOBACCO USER
     Dosage: UNK
     Route: 048
     Dates: start: 20110225

REACTIONS (5)
  - DEPRESSION [None]
  - VOMITING [None]
  - NAUSEA [None]
  - EATING DISORDER [None]
  - CRYING [None]
